FAERS Safety Report 10727477 (Version 1)
Quarter: 2015Q1

REPORT INFORMATION
  Report Type: Report from Study
  Country: ZA (occurrence: ZA)
  Receive Date: 20150121
  Receipt Date: 20150121
  Transmission Date: 20150721
  Serious: Yes (Other)
  Sender: FDA-Public Use
  Company Number: PHHY2015ZA006786

PATIENT
  Sex: Female

DRUGS (1)
  1. GLIVEC [Suspect]
     Active Substance: IMATINIB MESYLATE
     Indication: GASTROINTESTINAL STROMAL TUMOUR
     Dosage: 400 MG
     Route: 065

REACTIONS (8)
  - Cardiomegaly [Unknown]
  - Rash pruritic [Unknown]
  - Dysphagia [Unknown]
  - Fall [Unknown]
  - Tympanic membrane perforation [Unknown]
  - Disorientation [Unknown]
  - Asthenia [Unknown]
  - Cerumen impaction [Unknown]
